FAERS Safety Report 11149728 (Version 1)
Quarter: 2015Q2

REPORT INFORMATION
  Report Type: Report from Study
  Country: ES (occurrence: ES)
  Receive Date: 20150529
  Receipt Date: 20150529
  Transmission Date: 20150821
  Serious: Yes (Hospitalization)
  Sender: FDA-Public Use
  Company Number: ES-BAYER-2015-257271

PATIENT
  Age: 69 Year
  Sex: Male

DRUGS (2)
  1. ENALAPRIL [Concomitant]
     Active Substance: ENALAPRIL
  2. ADIRO 100 MG GASTRO-RESISTANT TABLETS 30 TABLETS [Suspect]
     Active Substance: ASPIRIN
     Indication: CEREBROVASCULAR ACCIDENT PROPHYLAXIS
     Dosage: 100 MG, QD
     Dates: start: 201402, end: 20140714

REACTIONS (2)
  - Intracranial venous sinus thrombosis [Recovered/Resolved]
  - Haemorrhagic cerebral infarction [Recovered/Resolved]

NARRATIVE: CASE EVENT DATE: 20140714
